FAERS Safety Report 20647563 (Version 1)
Quarter: 2022Q1

REPORT INFORMATION
  Report Type: Spontaneous
  Country: MY (occurrence: MY)
  Receive Date: 20220329
  Receipt Date: 20220329
  Transmission Date: 20220424
  Serious: Yes (Other)
  Sender: FDA-Public Use
  Company Number: MY-BAUSCH-BL-2022-007695

PATIENT
  Age: 25 Year
  Sex: Male

DRUGS (7)
  1. DEXAMETHASONE [Suspect]
     Active Substance: DEXAMETHASONE
     Indication: Sympathetic ophthalmia
     Route: 061
     Dates: start: 201905
  2. DEXAMETHASONE [Suspect]
     Active Substance: DEXAMETHASONE
     Dosage: TAPERED AND MAINTAINED AT A LOW DOSE, DAILY
     Route: 061
     Dates: start: 201906
  3. METHYLPREDNISOLONE [Suspect]
     Active Substance: METHYLPREDNISOLONE
     Indication: Sympathetic ophthalmia
     Route: 042
     Dates: start: 201905
  4. PREDNISOLONE [Suspect]
     Active Substance: PREDNISOLONE
     Indication: Sympathetic ophthalmia
     Dosage: 1?MG/KG/DAY
     Route: 048
     Dates: start: 201905
  5. PREDNISOLONE [Suspect]
     Active Substance: PREDNISOLONE
     Dosage: TAPERED AND MAINTAINED AT A LOW DOSE
     Route: 048
     Dates: start: 201906
  6. ATROPINE [Concomitant]
     Active Substance: ATROPINE
     Indication: Sympathetic ophthalmia
     Route: 061
     Dates: start: 201905
  7. AZATHIOPRINE [Concomitant]
     Active Substance: AZATHIOPRINE
     Indication: Sympathetic ophthalmia
     Dosage: 2?MG/KG/DAY
     Route: 048
     Dates: start: 201906

REACTIONS (2)
  - Cataract [Recovered/Resolved]
  - Intraocular pressure increased [Recovered/Resolved]

NARRATIVE: CASE EVENT DATE: 20190601
